FAERS Safety Report 8338897-5 (Version None)
Quarter: 2012Q2

REPORT INFORMATION
  Report Type: 
  Country: None (occurrence: None)
  Receive Date: 20120506
  Receipt Date: 20120425
  Transmission Date: 20120825
  Serious: Yes (Hospitalization)
  Sender: FDA-Public Use
  Company Number: NL-MEDIMMUNE-MEDI-0014381

PATIENT
  Sex: Female

DRUGS (3)
  1. SYNAGIS [Suspect]
     Route: 030
     Dates: start: 20120101, end: 20120101
  2. SYNAGIS [Suspect]
     Indication: PREMATURE BABY
     Route: 030
     Dates: start: 20110910, end: 20111229
  3. ESOMEPRAZOLE SODIUM [Concomitant]

REACTIONS (3)
  - ADVERSE EVENT [None]
  - HYPOPHAGIA [None]
  - MALNUTRITION [None]
